FAERS Safety Report 6997445-2 (Version None)
Quarter: 2010Q3

REPORT INFORMATION
  Report Type: 
  Country: None (occurrence: None)
  Receive Date: 20100918
  Receipt Date: 20091021
  Transmission Date: 20110219
  Serious: No
  Sender: FDA-Public Use
  Company Number: US-WYE-H11813709

PATIENT
  Age: 65 Year
  Sex: Male

DRUGS (2)
  1. PRISTIQ [Suspect]
     Indication: DEPRESSION
     Dosage: TOOK 2 CAPSULES BY ACCIDENT ON 13-OCT-2009 AND 15-OCT-2009 (OVERDOSE AMOUNT)
     Route: 048
     Dates: start: 20091013, end: 20091013
  2. OXYCODONE HCL [Concomitant]

REACTIONS (6)
  - ABNORMAL DREAMS [None]
  - ACCIDENTAL OVERDOSE [None]
  - DRUG WITHDRAWAL SYNDROME [None]
  - INCORRECT DOSE ADMINISTERED [None]
  - NAUSEA [None]
  - VOMITING [None]
